FAERS Safety Report 4743333-1 (Version None)
Quarter: 2005Q3

REPORT INFORMATION
  Report Type: 
  Country: None (occurrence: None)
  Receive Date: 20050809
  Receipt Date: 20050729
  Transmission Date: 20060218
  Serious: Yes (Life-Threatening, Hospitalization)
  Sender: FDA-Public Use
  Company Number: 200513079BCC

PATIENT
  Age: 80 Year
  Sex: Female
  Weight: 81.1939 kg

DRUGS (9)
  1. ASPIRIN [Suspect]
     Indication: CORONARY ARTERY DISEASE
     Dosage: 325 MG, QD, ORAL
     Route: 048
  2. ENOXAPARIN SODIUM [Suspect]
     Indication: ACUTE CORONARY SYNDROME
     Dosage: SUBCUTANEOUS
     Route: 058
     Dates: start: 20050228, end: 20050307
  3. DIGOXIN [Suspect]
     Dosage: 0.25 MG, TOTAL DAILY, ORAL
     Route: 048
  4. PLAVIX [Suspect]
     Indication: CORONARY ARTERY DISEASE
     Dosage: 75 MG, QD, ORAL
     Route: 048
     Dates: start: 20050301, end: 20050304
  5. LEVOFLOXACIN [Suspect]
     Indication: PNEUMONIA
     Dosage: 250 MG, QD, ORAL
     Route: 048
     Dates: start: 20050228, end: 20050303
  6. TORSEMIDE [Suspect]
     Dates: start: 20050228, end: 20050304
  7. DIOVAN [Concomitant]
  8. FUROSEMIDE [Concomitant]
  9. AMLODIPINE BESYLATE [Concomitant]

REACTIONS (9)
  - ANAEMIA [None]
  - CARDIAC FAILURE CONGESTIVE [None]
  - DIABETIC NEPHROPATHY [None]
  - MYOCARDIAL INFARCTION [None]
  - NEPHROPATHY TOXIC [None]
  - PLEURAL EFFUSION [None]
  - PNEUMONIA [None]
  - RENAL FAILURE ACUTE [None]
  - THERAPEUTIC AGENT TOXICITY [None]
